FAERS Safety Report 9831004 (Version 1)
Quarter: 2014Q1

REPORT INFORMATION
  Report Type: Spontaneous
  Country: DE (occurrence: DE)
  Receive Date: 20140120
  Receipt Date: 20140120
  Transmission Date: 20141002
  Serious: Yes (Other)
  Sender: FDA-Public Use
  Company Number: PHHY2014DE005893

PATIENT
  Sex: Male

DRUGS (1)
  1. LEPONEX / CLOZARIL (CLOZAPINE) [Suspect]
     Dosage: UNK
     Route: 048

REACTIONS (3)
  - Medication error [Unknown]
  - Agranulocytosis [Unknown]
  - Fungal infection [Unknown]
